FAERS Safety Report 25238725 (Version 1)
Quarter: 2025Q2

REPORT INFORMATION
  Report Type: Spontaneous
  Country: HU (occurrence: HU)
  Receive Date: 20250425
  Receipt Date: 20250425
  Transmission Date: 20250717
  Serious: Yes (Other)
  Sender: CHEPLAPHARM
  Company Number: HU-ROCHE-10000262067

PATIENT
  Sex: Female

DRUGS (1)
  1. CAPECITABINE [Suspect]
     Active Substance: CAPECITABINE
     Indication: Product used for unknown indication
     Dosage: ONCE A DAY?DAILY DOSE: 3500 MILLIGRAM

REACTIONS (2)
  - Anxiety [Unknown]
  - Hypertension [Unknown]
